FAERS Safety Report 6331427-9 (Version None)
Quarter: 2009Q3

REPORT INFORMATION
  Report Type: 
  Country: None (occurrence: None)
  Receive Date: 20090827
  Receipt Date: 20090821
  Transmission Date: 20100115
  Serious: Yes (Other)
  Sender: FDA-Public Use
  Company Number: US-ABBOTT-08P-163-0447196-00

PATIENT
  Sex: Female
  Weight: 52.664 kg

DRUGS (2)
  1. HUMIRA [Suspect]
     Indication: RHEUMATOID ARTHRITIS
     Dosage: 80 MG LOADING DOSE
     Route: 058
     Dates: start: 20071217, end: 20071217
  2. HUMIRA [Suspect]
     Dates: start: 20080208

REACTIONS (7)
  - ACCIDENTAL NEEDLE STICK [None]
  - DECREASED APPETITE [None]
  - DIARRHOEA [None]
  - FALL [None]
  - HIP FRACTURE [None]
  - MUSCULOSKELETAL STIFFNESS [None]
  - WEIGHT DECREASED [None]
